FAERS Safety Report 25068234 (Version 1)
Quarter: 2025Q1

REPORT INFORMATION
  Report Type: Spontaneous
  Country: RU (occurrence: RU)
  Receive Date: 20250312
  Receipt Date: 20250312
  Transmission Date: 20250409
  Serious: Yes (Other)
  Sender: PFIZER
  Company Number: RU-PFIZER INC-PV202500027942

PATIENT
  Age: 19 Year
  Sex: Female

DRUGS (1)
  1. BESPONSA [Suspect]
     Active Substance: INOTUZUMAB OZOGAMICIN
     Route: 042
     Dates: start: 20240531

REACTIONS (5)
  - Febrile neutropenia [Recovered/Resolved]
  - Sinusitis [Recovered/Resolved]
  - Retinal vascular disorder [Recovered/Resolved]
  - Retinal haemorrhage [Recovered/Resolved]
  - Retinal oedema [Recovered/Resolved]

NARRATIVE: CASE EVENT DATE: 20240601
